FAERS Safety Report 16593358 (Version 1)
Quarter: 2019Q3

REPORT INFORMATION
  Report Type: Spontaneous
  Country: GB (occurrence: GB)
  Receive Date: 20190718
  Receipt Date: 20190718
  Transmission Date: 20191004
  Serious: Yes (Death)
  Sender: FDA-Public Use
  Company Number: GB-PFIZER INC-2019304186

PATIENT
  Age: 66 Year
  Sex: Male

DRUGS (3)
  1. ISOSORBIDE MONONITRATE. [Suspect]
     Active Substance: ISOSORBIDE MONONITRATE
     Dosage: 20 MG, BID
     Route: 065
  2. AMLODIPINE BESILATE [Suspect]
     Active Substance: AMLODIPINE BESYLATE
     Indication: HYPERTENSION
     Dosage: 10 MG, QD
     Route: 065
  3. ASPIRIN (E.C.) [Suspect]
     Active Substance: ASPIRIN
     Dosage: 75 MG, QD
     Route: 065

REACTIONS (4)
  - Myocardial infarction [Fatal]
  - Atheroembolism [Fatal]
  - Abdominal distension [Fatal]
  - Hypotension [Fatal]
